FAERS Safety Report 19986712 (Version 1)
Quarter: 2021Q4

REPORT INFORMATION
  Report Type: Spontaneous
  Country: BR (occurrence: BR)
  Receive Date: 20211022
  Receipt Date: 20211022
  Transmission Date: 20220303
  Serious: Yes (Other)
  Sender: FDA-Public Use
  Company Number: BR-GSKCCFAMERS-CASE-01196799_AE-70005

PATIENT
  Sex: Male

DRUGS (1)
  1. UMECLIDINIUM BROMIDE [Suspect]
     Active Substance: UMECLIDINIUM BROMIDE
     Indication: Lung disorder
     Dosage: UNK
     Route: 055

REACTIONS (5)
  - Cerebrovascular accident [Unknown]
  - Aneurysm [Unknown]
  - Clumsiness [Unknown]
  - Speech disorder [Unknown]
  - Dysphonia [Unknown]
